FAERS Safety Report 5015084-X (Version None)
Quarter: 2006Q2

REPORT INFORMATION
  Report Type: 
  Country: None (occurrence: None)
  Receive Date: 20060426
  Receipt Date: 20060301
  Transmission Date: 20061013
  Serious: No
  Sender: FDA-Public Use
  Company Number: 220057

PATIENT
  Age: 64 Year
  Sex: Male
  Weight: 61.2 kg

DRUGS (16)
  1. XOLAIR [Suspect]
     Indication: ASTHMA
     Dosage: 300 MG, Q4W, INTRAMUSCULAR
     Route: 030
     Dates: start: 20041223, end: 20051115
  2. GEMFIBROZIL [Concomitant]
  3. HYTRIN [Concomitant]
  4. GLUCOPHAGE [Concomitant]
  5. PROSCAR [Concomitant]
  6. LANOXIN [Concomitant]
  7. ZESTRIL [Concomitant]
  8. COREG [Concomitant]
  9. COUMADIN [Concomitant]
  10. PRILOSEC [Concomitant]
  11. FOLGARD (CYANOCOBALAMIN, FOLIC ACID, PYRIDOXINE HYDROCHLORIDE, RIBOFLA [Concomitant]
  12. VITAMIN B6 [Concomitant]
  13. CYANOCOBALAMIN [Concomitant]
  14. PAXIL [Concomitant]
  15. PULMICORT [Concomitant]
  16. FLONASE [Concomitant]

REACTIONS (1)
  - HYPOSMIA [None]
